FAERS Safety Report 6140746-0 (Version None)
Quarter: 2009Q2

REPORT INFORMATION
  Report Type: 
  Country: None (occurrence: None)
  Receive Date: 20090402
  Receipt Date: 20090401
  Transmission Date: 20091009
  Serious: Yes (Death, Other)
  Sender: FDA-Public Use
  Company Number: PHHO2005GB03753

PATIENT
  Sex: Female
  Weight: 81 kg

DRUGS (1)
  1. CGS 20267 T30748+ [Suspect]
     Indication: BREAST CANCER
     Dosage: 2.5 MG, QD
     Route: 048
     Dates: start: 20010711, end: 20041201

REACTIONS (4)
  - ACUTE MYOCARDIAL INFARCTION [None]
  - FALL [None]
  - HAEMATOMA [None]
  - HYPERTENSIVE HEART DISEASE [None]
